FAERS Safety Report 16923773 (Version 1)
Quarter: 2019Q4

REPORT INFORMATION
  Report Type: Spontaneous
  Country: US (occurrence: US)
  Receive Date: 20191016
  Receipt Date: 20191016
  Transmission Date: 20200122
  Serious: Yes (Hospitalization)
  Sender: FDA-Public Use
  Company Number: US-LEO PHARMA-325790

PATIENT
  Age: 74 Year
  Sex: Male
  Weight: 120.2 kg

DRUGS (5)
  1. UNSPECIFIED BLOOD PRESSURE MEDICATION [Concomitant]
     Active Substance: UNSPECIFIED INGREDIENT
     Indication: PRODUCT USED FOR UNKNOWN INDICATION
  2. ASA [Concomitant]
     Active Substance: ASPIRIN
     Indication: PRODUCT USED FOR UNKNOWN INDICATION
  3. DAIVONEX [Suspect]
     Active Substance: CALCIPOTRIENE
     Indication: PSORIASIS
     Dosage: 2XDAY (SATURDAY AND SUNDAY)
     Dates: start: 20190909, end: 20190916
  4. CLOBETASOL PROPIONATE. [Suspect]
     Active Substance: CLOBETASOL PROPIONATE
     Indication: PSORIASIS
     Dosage: THIN FILM 2X/DAY (MONDAY TO FRIDAY)
     Route: 061
     Dates: start: 20190908
  5. GABAPENTIN. [Concomitant]
     Active Substance: GABAPENTIN
     Indication: PRODUCT USED FOR UNKNOWN INDICATION

REACTIONS (6)
  - Gait disturbance [Not Recovered/Not Resolved]
  - Musculoskeletal stiffness [Recovering/Resolving]
  - Gait inability [Recovering/Resolving]
  - Headache [Not Recovered/Not Resolved]
  - Motor dysfunction [Not Recovered/Not Resolved]
  - Migraine [Recovered/Resolved]

NARRATIVE: CASE EVENT DATE: 201909
